FAERS Safety Report 8436073-9 (Version None)
Quarter: 2012Q2

REPORT INFORMATION
  Report Type: 
  Country: None (occurrence: None)
  Receive Date: 20120614
  Receipt Date: 20120502
  Transmission Date: 20120825
  Serious: Yes (Other)
  Sender: FDA-Public Use
  Company Number: US-ASTRAZENECA-2012SE28305

PATIENT
  Age: 47 Year
  Sex: Female

DRUGS (3)
  1. TAMOXIFEN CITRATE [Suspect]
     Route: 048
  2. ZOLADEX [Suspect]
     Indication: MENOPAUSE
     Route: 058
  3. ZOLADEX [Suspect]
     Indication: BREAST CANCER
     Route: 058

REACTIONS (2)
  - THROMBOSIS [None]
  - OFF LABEL USE [None]
